FAERS Safety Report 13064555 (Version 9)
Quarter: 2019Q2

REPORT INFORMATION
  Report Type: Report from Study
  Country: US (occurrence: US)
  Receive Date: 20161227
  Receipt Date: 20190403
  Transmission Date: 20190711
  Serious: Yes (Death, Life-Threatening, Hospitalization)
  Sender: FDA-Public Use
  Company Number: US-CELGENEUS-USA-2016123526

PATIENT
  Age: 77 Year
  Sex: Female
  Weight: 84.6 kg

DRUGS (1)
  1. VIDAZA [Suspect]
     Active Substance: AZACITIDINE
     Indication: MYELODYSPLASTIC SYNDROME
     Dosage: 75 MILLIGRAM
     Route: 041
     Dates: start: 20150706, end: 20151106

REACTIONS (3)
  - Pneumonia [Fatal]
  - Sepsis [Fatal]
  - Septic shock [Fatal]

NARRATIVE: CASE EVENT DATE: 20151123
